FAERS Safety Report 14486779 (Version 1)
Quarter: 2018Q1

REPORT INFORMATION
  Report Type: Spontaneous
  Country: US (occurrence: US)
  Receive Date: 20180205
  Receipt Date: 20180205
  Transmission Date: 20180509
  Serious: Yes (Hospitalization, Other)
  Sender: FDA-Public Use
  Company Number: US-JNJFOC-20180120769

PATIENT
  Age: 59 Year
  Sex: Female

DRUGS (1)
  1. INVOKANA [Suspect]
     Active Substance: CANAGLIFLOZIN
     Indication: PRODUCT USED FOR UNKNOWN INDICATION
     Route: 048

REACTIONS (8)
  - Peripheral vascular disorder [Recovering/Resolving]
  - Necrotising soft tissue infection [Recovering/Resolving]
  - Gangrene [Recovering/Resolving]
  - Leg amputation [Recovering/Resolving]
  - Skin ulcer [Recovering/Resolving]
  - Cellulitis [Recovering/Resolving]
  - Toe amputation [Recovering/Resolving]
  - Osteomyelitis [Recovering/Resolving]

NARRATIVE: CASE EVENT DATE: 20160529
